FAERS Safety Report 4700497-3 (Version None)
Quarter: 2005Q2

REPORT INFORMATION
  Report Type: 
  Country: None (occurrence: None)
  Receive Date: 20050627
  Receipt Date: 20050614
  Transmission Date: 20051028
  Serious: Yes (Other)
  Sender: FDA-Public Use
  Company Number: 2005AC00896

PATIENT
  Age: 68 Year
  Sex: Male

DRUGS (2)
  1. BUPIVACAINE [Suspect]
     Indication: ANAESTHESIA
     Route: 053
  2. LIDOCAINE [Suspect]
     Indication: ANAESTHESIA
     Route: 053

REACTIONS (2)
  - DIAPHRAGMATIC PARALYSIS [None]
  - RESPIRATORY DISTRESS [None]
